FAERS Safety Report 25778071 (Version 1)
Quarter: 2025Q3

REPORT INFORMATION
  Report Type: Spontaneous
  Country: JP (occurrence: JP)
  Receive Date: 20250909
  Receipt Date: 20250909
  Transmission Date: 20251020
  Serious: Yes (Other)
  Sender: RANBAXY
  Company Number: JP-SUN PHARMACEUTICAL INDUSTRIES LTD-2025RR-525471

PATIENT
  Age: 20 Year
  Sex: Female

DRUGS (2)
  1. LAMOTRIGINE [Suspect]
     Active Substance: LAMOTRIGINE
     Indication: Product used for unknown indication
     Route: 048
  2. REBAMIPIDE [Suspect]
     Active Substance: REBAMIPIDE
     Indication: Product used for unknown indication
     Route: 065

REACTIONS (10)
  - Toxicity to various agents [Unknown]
  - Intentional overdose [Unknown]
  - Metabolic acidosis [Unknown]
  - Hypernatraemia [Unknown]
  - Hypokalaemia [Unknown]
  - Sinus tachycardia [Unknown]
  - Electrocardiogram QRS complex prolonged [Unknown]
  - Altered state of consciousness [Unknown]
  - Seizure [Unknown]
  - Vomiting [Unknown]
